FAERS Safety Report 23374576 (Version 1)
Quarter: 2024Q1

REPORT INFORMATION
  Report Type: Spontaneous
  Country: US (occurrence: US)
  Receive Date: 20240105
  Receipt Date: 20240105
  Transmission Date: 20240410
  Serious: No
  Sender: FDA-Public Use
  Company Number: US-COOPERSURGICAL, INC.-US-2023CPS003525

PATIENT
  Age: 37 Year
  Sex: Female
  Weight: 63.946 kg

DRUGS (1)
  1. PARAGARD T 380A [Suspect]
     Active Substance: COPPER
     Indication: Contraception
     Dosage: UNK
     Route: 015
     Dates: start: 20231026, end: 20231026

REACTIONS (2)
  - Complication of device insertion [Recovered/Resolved]
  - Device placement issue [Recovered/Resolved]

NARRATIVE: CASE EVENT DATE: 20231026
